FAERS Safety Report 20798783 (Version 2)
Quarter: 2022Q2

REPORT INFORMATION
  Report Type: Spontaneous
  Country: IN (occurrence: IN)
  Receive Date: 20220507
  Receipt Date: 20220513
  Transmission Date: 20220721
  Serious: Yes (Other)
  Sender: FDA-Public Use
  Company Number: IN-drreddys-LIT/IND/22/0149674

PATIENT
  Age: 40 Year
  Sex: Male

DRUGS (7)
  1. DEXAMETHASONE [Suspect]
     Active Substance: DEXAMETHASONE
     Indication: Arthritis reactive
  2. DEXAMETHASONE [Suspect]
     Active Substance: DEXAMETHASONE
  3. DOXYCYCLINE [Suspect]
     Active Substance: DOXYCYCLINE
     Indication: Arthritis reactive
  4. METHOTREXATE [Suspect]
     Active Substance: METHOTREXATE
     Indication: Arthritis reactive
  5. TRAMADOL [Suspect]
     Active Substance: TRAMADOL
     Indication: Arthritis reactive
  6. PREDNISOLONE [Suspect]
     Active Substance: PREDNISOLONE
     Indication: Arthritis reactive
     Route: 048
  7. ADALIMUMAB [Concomitant]
     Active Substance: ADALIMUMAB
     Indication: Arthritis reactive

REACTIONS (3)
  - Cataract [Unknown]
  - Type 2 diabetes mellitus [Unknown]
  - Treatment failure [Unknown]
